FAERS Safety Report 20008541 (Version 3)
Quarter: 2021Q4

REPORT INFORMATION
  Report Type: Other
  Country: US (occurrence: None)
  Receive Date: 20211028
  Receipt Date: 20211124
  Transmission Date: 20220304
  Serious: Yes (Hospitalization, Disabling, Other)
  Sender: FDA-Public Use
  Company Number: US-ROCHE-2114284

PATIENT
  Age: 76 Year
  Sex: Female

DRUGS (2)
  1. ESBRIET [Suspect]
     Active Substance: PIRFENIDONE
     Indication: Idiopathic pulmonary fibrosis
     Dosage: TAKE 3 TABLET(S) BY MOUTH 3 TIMES A DAY WITH MEALS
     Route: 048
  2. ESBRIET [Suspect]
     Active Substance: PIRFENIDONE
     Indication: Idiopathic pulmonary fibrosis
     Dosage: TAKE 3 BY MOUTH 3 TIMES A DAY WITH MEALS
     Route: 048

REACTIONS (8)
  - Fall [Unknown]
  - Accident [Unknown]
  - Cervical vertebral fracture [Unknown]
  - Blindness [Unknown]
  - Musculoskeletal stiffness [Unknown]
  - Headache [Unknown]
  - Depression [Unknown]
  - Breast cancer [Unknown]

NARRATIVE: CASE EVENT DATE: 20180401
